FAERS Safety Report 10513166 (Version 2)
Quarter: 2014Q4

REPORT INFORMATION
  Report Type: Spontaneous
  Country: FR (occurrence: FR)
  Receive Date: 20141013
  Receipt Date: 20141016
  Transmission Date: 20150528
  Serious: Yes (Hospitalization)
  Sender: FDA-Public Use
  Company Number: FR-ROCHE-1472535

PATIENT
  Age: 39 Year
  Sex: Male

DRUGS (3)
  1. SERESTA [Suspect]
     Active Substance: OXAZEPAM
     Indication: PRODUCT USED FOR UNKNOWN INDICATION
     Dosage: 30MG X6,
     Route: 048
     Dates: start: 20140907, end: 20140907
  2. NORSET [Concomitant]
     Active Substance: MIRTAZAPINE
     Dosage: 2 TABLETS ON EVENINGS
     Route: 065
  3. VALIUM [Suspect]
     Active Substance: DIAZEPAM
     Indication: PRODUCT USED FOR UNKNOWN INDICATION
     Dosage: 10MG X5,10MG X4,10MG X3,10MG X2,10MG X1
     Route: 048
     Dates: start: 20140908, end: 20140917

REACTIONS (1)
  - Hepatocellular injury [Recovered/Resolved]

NARRATIVE: CASE EVENT DATE: 20140912
